FAERS Safety Report 10479295 (Version 1)
Quarter: 2014Q3

REPORT INFORMATION
  Report Type: Report from Study
  Country: US (occurrence: US)
  Receive Date: 20140926
  Receipt Date: 20140926
  Transmission Date: 20150326
  Serious: Yes (Hospitalization, Other)
  Sender: FDA-Public Use
  Company Number: US-ABBVIE-14K-163-1287452-00

PATIENT
  Age: 51 Year
  Sex: Female

DRUGS (6)
  1. IBUPROFEN. [Suspect]
     Active Substance: IBUPROFEN
     Indication: PAIN
  2. HUMIRA [Suspect]
     Active Substance: ADALIMUMAB
     Indication: PSORIASIS
     Dates: start: 201312, end: 20140824
  3. TRAMADOL [Suspect]
     Active Substance: TRAMADOL
     Indication: PAIN
  4. TYLENOL [Suspect]
     Active Substance: ACETAMINOPHEN
     Indication: PAIN
  5. HUMIRA [Suspect]
     Active Substance: ADALIMUMAB
     Indication: PSORIATIC ARTHROPATHY
  6. HUMIRA [Suspect]
     Active Substance: ADALIMUMAB
     Indication: PSORIASIS
     Dates: start: 2006, end: 201309

REACTIONS (12)
  - Diverticulitis [Recovered/Resolved]
  - Stress [Not Recovered/Not Resolved]
  - Psoriasis [Not Recovered/Not Resolved]
  - Anxiety [Unknown]
  - Weight decreased [Recovered/Resolved]
  - Eating disorder [Recovered/Resolved]
  - Hernia [Recovered/Resolved]
  - Wound drainage [Recovered/Resolved]
  - Pain [Not Recovered/Not Resolved]
  - Anticipatory anxiety [Unknown]
  - Impaired healing [Recovered/Resolved]
  - Drug ineffective [Unknown]

NARRATIVE: CASE EVENT DATE: 201109
